FAERS Safety Report 8621769-6 (Version None)
Quarter: 2012Q3

REPORT INFORMATION
  Report Type: 
  Country: None (occurrence: None)
  Receive Date: 20120821
  Receipt Date: 20120821
  Transmission Date: 20120928
  Serious: Yes (Other)
  Sender: FDA-Public Use
  Company Number: None

PATIENT
  Age: 19 Year
  Sex: Female
  Weight: 56.6996 kg

DRUGS (2)
  1. SEASONALE [Suspect]
     Indication: CONTRACEPTION
     Dates: start: 20120103, end: 20120815
  2. SEASONALE [Suspect]
     Indication: MUSCLE SPASMS
     Dates: start: 20120103, end: 20120815

REACTIONS (4)
  - ABDOMINAL DISTENSION [None]
  - MUSCLE SPASMS [None]
  - HAEMORRHAGE [None]
  - THROMBOSIS [None]
